FAERS Safety Report 16046831 (Version 1)
Quarter: 2019Q2

REPORT INFORMATION
  Report Type: Spontaneous
  Country: US (occurrence: US)
  Receive Date: 20190307
  Receipt Date: 20190307
  Transmission Date: 20190711
  Serious: Yes (Other)
  Sender: FDA-Public Use
  Company Number: None

PATIENT
  Age: 55 Year
  Sex: Male
  Weight: 105.75 kg

DRUGS (1)
  1. LISINOPRIL 10MG TABLETS [Suspect]
     Active Substance: LISINOPRIL
     Indication: HYPERTENSION
     Dosage: ?          QUANTITY:1 TABLET(S);?
     Route: 048
     Dates: start: 20170101, end: 20180101

REACTIONS (8)
  - Condition aggravated [None]
  - Arthralgia [None]
  - Feeling abnormal [None]
  - Nausea [None]
  - Connective tissue disorder [None]
  - Ligament pain [None]
  - Tendon pain [None]
  - Cough [None]

NARRATIVE: CASE EVENT DATE: 20180101
